FAERS Safety Report 20162621 (Version 4)
Quarter: 2022Q1

REPORT INFORMATION
  Report Type: Spontaneous
  Country: PT (occurrence: PT)
  Receive Date: 20211208
  Receipt Date: 20220103
  Transmission Date: 20220423
  Serious: Yes (Other)
  Sender: FDA-Public Use
  Company Number: PT-CELLTRION HEALTHCARE HUNGARY KFT-2021PT016019

PATIENT
  Age: 29 Year
  Sex: Male

DRUGS (3)
  1. REMICADE [Suspect]
     Active Substance: INFLIXIMAB
     Indication: Colitis ulcerative
     Route: 042
  2. PREDNISOLONE [Concomitant]
     Active Substance: PREDNISOLONE
     Dosage: FINISHING A CYCLE OF SYSTEMIC CORTICOTHERAPY
  3. MESALAMINE [Concomitant]
     Active Substance: MESALAMINE

REACTIONS (1)
  - Herpes zoster oticus [Unknown]
